FAERS Safety Report 11196554 (Version 1)
Quarter: 2015Q2

REPORT INFORMATION
  Report Type: Spontaneous
  Country: JP (occurrence: None)
  Receive Date: 20150615
  Receipt Date: 20150615
  Transmission Date: 20150821
  Serious: Yes (Hospitalization, Other)
  Sender: FDA-Public Use
  Company Number: JP2015JPN016323

PATIENT
  Age: 23 Year
  Sex: Female

DRUGS (5)
  1. ZIAGEN [Suspect]
     Active Substance: ABACAVIR SULFATE
     Route: 048
  2. COMBIVIR [Suspect]
     Active Substance: LAMIVUDINE\ZIDOVUDINE
     Indication: HIV INFECTION
     Route: 048
     Dates: start: 20140528
  3. EPZICOM [Suspect]
     Active Substance: ABACAVIR SULFATE\LAMIVUDINE
     Indication: HIV INFECTION
     Route: 048
  4. LEXIVA [Suspect]
     Active Substance: FOSAMPRENAVIR CALCIUM
     Indication: HIV INFECTION
     Route: 048
  5. TIVICAY [Suspect]
     Active Substance: DOLUTEGRAVIR SODIUM
     Indication: HIV INFECTION
     Route: 048

REACTIONS (9)
  - Toxic epidermal necrolysis [None]
  - Live birth [None]
  - Foetal growth restriction [None]
  - Diarrhoea [None]
  - Headache [None]
  - Faeces soft [None]
  - Exposure during pregnancy [None]
  - Caesarean section [None]
  - Stevens-Johnson syndrome [None]
